FAERS Safety Report 17098621 (Version 1)
Quarter: 2019Q4

REPORT INFORMATION
  Report Type: Spontaneous
  Country: US (occurrence: US)
  Receive Date: 20191105
  Receipt Date: 20191105
  Transmission Date: 20200122
  Serious: Yes (Hospitalization)
  Sender: FDA-Public Use
  Company Number: None

PATIENT
  Age: 5 Year
  Sex: Female

DRUGS (5)
  1. AZITHROMYCIN ANHYDROUS. [Concomitant]
     Active Substance: AZITHROMYCIN ANHYDROUS
  2. BOOST BREEZE [Concomitant]
  3. AQUODEKS [Concomitant]
  4. ENSURE CLEAR [Concomitant]
  5. PULMOZYME [Suspect]
     Active Substance: DORNASE ALFA
     Indication: CYSTIC FIBROSIS
     Dosage: ?          OTHER DOSE:2.5MG/2.5ML;OTHER ROUTE:NEB INH?
     Dates: start: 20190131

REACTIONS (2)
  - Pneumonia [None]
  - Upper respiratory tract infection [None]

NARRATIVE: CASE EVENT DATE: 20191010
